FAERS Safety Report 21063796 (Version 1)
Quarter: 2022Q3

REPORT INFORMATION
  Report Type: Report from Study
  Country: JP (occurrence: JP)
  Receive Date: 20220711
  Receipt Date: 20220711
  Transmission Date: 20221027
  Serious: Yes (Hospitalization)
  Sender: FDA-Public Use
  Company Number: JP-BEH-2021136661

PATIENT
  Age: 78 Year
  Sex: Male
  Weight: 60 kg

DRUGS (13)
  1. HIZENTRA [Suspect]
     Active Substance: HUMAN IMMUNOGLOBULIN G
     Indication: Chronic inflammatory demyelinating polyradiculoneuropathy
     Dosage: 60 MILLILITER
     Route: 058
     Dates: start: 20200626, end: 20200626
  2. HIZENTRA [Suspect]
     Active Substance: HUMAN IMMUNOGLOBULIN G
     Dosage: 120 MILLILITER, QW
     Route: 058
     Dates: start: 20200703, end: 20200703
  3. HIZENTRA [Suspect]
     Active Substance: HUMAN IMMUNOGLOBULIN G
     Dosage: 120 MILLILITER, QW
     Route: 058
     Dates: start: 20200712, end: 20200821
  4. HIZENTRA [Suspect]
     Active Substance: HUMAN IMMUNOGLOBULIN G
     Dosage: 120 MILLILITER, QW
     Route: 058
     Dates: start: 20200828, end: 20200925
  5. HIZENTRA [Suspect]
     Active Substance: HUMAN IMMUNOGLOBULIN G
     Dosage: 120 MILLILITER, QW
     Route: 058
     Dates: start: 20201002, end: 20201011
  6. HIZENTRA [Suspect]
     Active Substance: HUMAN IMMUNOGLOBULIN G
     Dosage: 120 MILLILITER, QD
     Route: 058
     Dates: start: 20201018, end: 20201018
  7. HIZENTRA [Suspect]
     Active Substance: HUMAN IMMUNOGLOBULIN G
     Dosage: 120 MILLILITER, QW
     Route: 058
     Dates: start: 20201025, end: 20201031
  8. HIZENTRA [Suspect]
     Active Substance: HUMAN IMMUNOGLOBULIN G
     Dosage: 120 MILLILITER, QD
     Route: 058
     Dates: start: 20201120, end: 20201120
  9. PREDNISOLONE [Concomitant]
     Active Substance: PREDNISOLONE
     Indication: Chronic inflammatory demyelinating polyradiculoneuropathy
     Dosage: 10 MILLIGRAM
     Route: 048
  10. IMURAN [Concomitant]
     Active Substance: AZATHIOPRINE
     Indication: Chronic inflammatory demyelinating polyradiculoneuropathy
     Dosage: 50 MILLIGRAM
     Route: 048
  11. ALENDRONATE SODIUM [Concomitant]
     Active Substance: ALENDRONATE SODIUM
     Indication: Osteoporosis
     Dosage: 5 MILLIGRAM
     Route: 048
  12. CANDESARTAN [Concomitant]
     Active Substance: CANDESARTAN
     Indication: Hypertension
     Dosage: 8 MILLIGRAM
     Route: 048
  13. LANSOPRAZOLE [Concomitant]
     Active Substance: LANSOPRAZOLE
     Indication: Prophylaxis
     Dosage: 15 MILLIGRAM
     Route: 048

REACTIONS (5)
  - Sensory disturbance [Recovering/Resolving]
  - Muscular weakness [Recovering/Resolving]
  - Injection site swelling [Recovered/Resolved]
  - Sensory disturbance [Unknown]
  - Muscular weakness [Unknown]

NARRATIVE: CASE EVENT DATE: 20200901
